FAERS Safety Report 9915150 (Version 1)
Quarter: 2014Q1

REPORT INFORMATION
  Report Type: Report from Study
  Country: BE (occurrence: BE)
  Receive Date: 20140220
  Receipt Date: 20140220
  Transmission Date: 20141002
  Serious: Yes (Hospitalization)
  Sender: FDA-Public Use
  Company Number: BE-ASTRAZENECA-2014SE10772

PATIENT
  Age: 62 Year
  Sex: Male

DRUGS (5)
  1. TICAGRELOR [Suspect]
     Indication: ACUTE CORONARY SYNDROME
     Route: 048
     Dates: start: 20131017
  2. ACETYLSALICYLIC ACID [Suspect]
     Indication: ACUTE CORONARY SYNDROME
     Route: 048
  3. LIPITOR [Concomitant]
  4. BISOPROLOL [Concomitant]
  5. TRITACE [Concomitant]

REACTIONS (1)
  - Angina pectoris [Not Recovered/Not Resolved]
